FAERS Safety Report 9012648 (Version 2)
Quarter: 2013Q3

REPORT INFORMATION
  Report Type: Report from Study
  Country: US (occurrence: US)
  Receive Date: 20130114
  Receipt Date: 20130712
  Transmission Date: 20140515
  Serious: Yes (Hospitalization, Other)
  Sender: FDA-Public Use
  Company Number: US-ABBOTT-13P-163-1032628-00

PATIENT
  Age: 55 Year
  Sex: Female

DRUGS (7)
  1. HUMIRA [Suspect]
     Indication: CROHN^S DISEASE
     Route: 058
     Dates: start: 201210, end: 201212
  2. ENTOCORT [Concomitant]
     Indication: CROHN^S DISEASE
  3. CYMBALTA [Concomitant]
     Indication: PAIN
  4. QUESTRAN [Concomitant]
     Indication: DIARRHOEA
  5. OMEPRAZOLE [Concomitant]
     Indication: GASTROOESOPHAGEAL REFLUX DISEASE
  6. VITAMIN D [Concomitant]
     Indication: VITAMIN D DECREASED
  7. IMODIUM [Concomitant]
     Indication: DIARRHOEA

REACTIONS (11)
  - Weight decreased [Recovered/Resolved]
  - Chills [Recovered/Resolved]
  - Small intestinal obstruction [Recovered/Resolved]
  - Crohn^s disease [Recovered/Resolved]
  - Pyrexia [Recovered/Resolved]
  - Diarrhoea [Recovered/Resolved]
  - Nausea [Recovered/Resolved]
  - Vomiting [Recovered/Resolved]
  - Cough [Unknown]
  - Oral herpes [Unknown]
  - Drug ineffective [Unknown]
